FAERS Safety Report 4376787-3 (Version None)
Quarter: 2004Q2

REPORT INFORMATION
  Report Type: 
  Country: None (occurrence: None)
  Receive Date: 20040608
  Receipt Date: 20040527
  Transmission Date: 20050107
  Serious: Yes (Hospitalization, Other)
  Sender: FDA-Public Use
  Company Number: HQWYE821504FEB04

PATIENT
  Age: 43 Year
  Sex: Female
  Weight: 61 kg

DRUGS (21)
  1. RAPAMUNE [Suspect]
     Indication: PROPHYLAXIS AGAINST TRANSPLANT REJECTION
     Dosage: 3 MG 1X PER 1 DAY, ORAL
     Route: 048
     Dates: start: 20040323, end: 20040401
  2. RAPAMUNE [Suspect]
     Indication: PROPHYLAXIS AGAINST TRANSPLANT REJECTION
     Dosage: 1 MG 1X PER 1 DAY, ORAL
     Route: 048
     Dates: start: 20040402, end: 20040421
  3. RAPAMUNE [Suspect]
     Indication: PROPHYLAXIS AGAINST TRANSPLANT REJECTION
     Dosage: 3 MG 1X PER 1 DAY, ORAL
     Route: 048
     Dates: start: 20040422, end: 20040502
  4. RAPAMUNE [Suspect]
     Indication: PROPHYLAXIS AGAINST TRANSPLANT REJECTION
     Dosage: 6 MG 1X PER 1 DAY, ORAL
     Route: 048
     Dates: start: 20040503
  5. NEORAL [Concomitant]
  6. PREDNISONE TAB [Concomitant]
  7. VALCYTE [Concomitant]
  8. DAPSONE [Concomitant]
  9. NYSTATIN [Concomitant]
  10. FOLIC ACID [Concomitant]
  11. PROTONIX [Concomitant]
  12. LOPRESSOR [Concomitant]
  13. ........ [Concomitant]
  14. CATAPRES [Concomitant]
  15. PROCARDIA [Concomitant]
  16. FUROSEMIDE [Concomitant]
  17. PROZAC [Concomitant]
  18. EPOGEN [Concomitant]
  19. ........... [Concomitant]
  20. ......... [Concomitant]
  21. PREMARIN [Concomitant]

REACTIONS (6)
  - CELLULITIS [None]
  - COMPLICATIONS OF TRANSPLANTED KIDNEY [None]
  - ERYTHEMA [None]
  - HAEMODIALYSIS [None]
  - HAEMOGLOBIN DECREASED [None]
  - RENAL TUBULAR NECROSIS [None]
